FAERS Safety Report 11444823 (Version 1)
Quarter: 2015Q3

REPORT INFORMATION
  Report Type: Spontaneous
  Country: US (occurrence: US)
  Receive Date: 20150902
  Receipt Date: 20150902
  Transmission Date: 20151125
  Serious: Yes (Other)
  Sender: FDA-Public Use
  Company Number: US-ASTRAZENECA-2015SE82539

PATIENT
  Sex: Female

DRUGS (1)
  1. TUDORZA PRESSAIR [Suspect]
     Active Substance: ACLIDINIUM BROMIDE
     Dosage: 400 MCG, 1 CLICK ONCE A DAY
     Route: 055

REACTIONS (10)
  - Rib fracture [Unknown]
  - Memory impairment [Unknown]
  - Visual acuity reduced [Unknown]
  - Product quality issue [Unknown]
  - Thinking abnormal [Unknown]
  - Headache [Unknown]
  - Fatigue [Unknown]
  - Renal disorder [Unknown]
  - Intentional product misuse [Unknown]
  - Adverse event [Unknown]
